FAERS Safety Report 7550184-1 (Version None)
Quarter: 2011Q2

REPORT INFORMATION
  Report Type: 
  Country: None (occurrence: None)
  Receive Date: 20110615
  Receipt Date: 20110601
  Transmission Date: 20111010
  Serious: Yes (Hospitalization)
  Sender: FDA-Public Use
  Company Number: US-WATSON-2011-07635

PATIENT
  Age: 60 Year
  Sex: Male

DRUGS (4)
  1. ASIAN HERB THERAPY [Suspect]
     Indication: PRODUCT USED FOR UNKNOWN INDICATION
     Dosage: UNK
     Route: 065
  2. COLCHICINE [Suspect]
     Indication: PRODUCT USED FOR UNKNOWN INDICATION
     Dosage: UNK
     Route: 065
  3. ULORIC [Suspect]
     Indication: GOUT
     Dosage: 80 MG, DAILY
     Route: 048
  4. INDOMETHACIN [Suspect]
     Indication: PAIN
     Dosage: 150 MG, DAILY
     Route: 065

REACTIONS (4)
  - PYREXIA [None]
  - WHITE BLOOD CELL COUNT INCREASED [None]
  - GOUTY TOPHUS [None]
  - RENAL FAILURE ACUTE [None]
